FAERS Safety Report 7640948-8 (Version None)
Quarter: 2011Q3

REPORT INFORMATION
  Report Type: 
  Country: None (occurrence: None)
  Receive Date: 20110728
  Receipt Date: 20110721
  Transmission Date: 20111222
  Serious: Yes (Hospitalization)
  Sender: FDA-Public Use
  Company Number: MX-JNJFOC-20110700825

PATIENT
  Age: 79 Year
  Sex: Female

DRUGS (6)
  1. GOLIMUMAB [Suspect]
     Route: 058
     Dates: start: 20100805
  2. FOLIC ACID [Concomitant]
     Indication: ILL-DEFINED DISORDER
  3. METHOTREXATE [Suspect]
     Indication: ILL-DEFINED DISORDER
  4. OMEPRAZOLE [Concomitant]
     Indication: ILL-DEFINED DISORDER
  5. GOLIMUMAB [Suspect]
     Indication: RHEUMATOID ARTHRITIS
     Route: 058
     Dates: start: 20110605
  6. ACETAMINOPHEN [Concomitant]
     Indication: ILL-DEFINED DISORDER

REACTIONS (2)
  - URINARY TRACT INFECTION [None]
  - PYREXIA [None]
